FAERS Safety Report 6344269-5 (Version None)
Quarter: 2009Q3

REPORT INFORMATION
  Report Type: 
  Country: None (occurrence: None)
  Receive Date: 20090903
  Receipt Date: 20090819
  Transmission Date: 20100115
  Serious: Yes (Hospitalization)
  Sender: FDA-Public Use
  Company Number: JPI-P-008339

PATIENT
  Age: 43 Year
  Sex: Female

DRUGS (9)
  1. XYREM             (500 MG/MLS, SOLUTION) (SODIUM OXYBATE) [Suspect]
     Indication: FIBROMYALGIA
     Dosage: 4.5 GM (2.25 GM, 2 IN 1 D), ORAL; 6 GM (3 GM, 2 IN 1 D), ORAL; (7 GM, 1 D), ORAL; (9 GM, 1 D), ORAL
     Route: 048
     Dates: end: 20090801
  2. XYREM             (500 MG/MLS, SOLUTION) (SODIUM OXYBATE) [Suspect]
     Indication: SOMNOLENCE
     Dosage: 4.5 GM (2.25 GM, 2 IN 1 D), ORAL; 6 GM (3 GM, 2 IN 1 D), ORAL; (7 GM, 1 D), ORAL; (9 GM, 1 D), ORAL
     Route: 048
     Dates: end: 20090801
  3. XYREM             (500 MG/MLS, SOLUTION) (SODIUM OXYBATE) [Suspect]
     Indication: FIBROMYALGIA
     Dosage: 4.5 GM (2.25 GM, 2 IN 1 D), ORAL; 6 GM (3 GM, 2 IN 1 D), ORAL; (7 GM, 1 D), ORAL; (9 GM, 1 D), ORAL
     Route: 048
     Dates: start: 20090702
  4. XYREM             (500 MG/MLS, SOLUTION) (SODIUM OXYBATE) [Suspect]
     Indication: SOMNOLENCE
     Dosage: 4.5 GM (2.25 GM, 2 IN 1 D), ORAL; 6 GM (3 GM, 2 IN 1 D), ORAL; (7 GM, 1 D), ORAL; (9 GM, 1 D), ORAL
     Route: 048
     Dates: start: 20090702
  5. XYREM             (500 MG/MLS, SOLUTION) (SODIUM OXYBATE) [Suspect]
     Indication: FIBROMYALGIA
     Dosage: 4.5 GM (2.25 GM, 2 IN 1 D), ORAL; 6 GM (3 GM, 2 IN 1 D), ORAL; (7 GM, 1 D), ORAL; (9 GM, 1 D), ORAL
     Route: 048
     Dates: start: 20090727
  6. XYREM             (500 MG/MLS, SOLUTION) (SODIUM OXYBATE) [Suspect]
     Indication: SOMNOLENCE
     Dosage: 4.5 GM (2.25 GM, 2 IN 1 D), ORAL; 6 GM (3 GM, 2 IN 1 D), ORAL; (7 GM, 1 D), ORAL; (9 GM, 1 D), ORAL
     Route: 048
     Dates: start: 20090727
  7. XYREM             (500 MG/MLS, SOLUTION) (SODIUM OXYBATE) [Suspect]
     Indication: FIBROMYALGIA
     Dosage: 4.5 GM (2.25 GM, 2 IN 1 D), ORAL; 6 GM (3 GM, 2 IN 1 D), ORAL; (7 GM, 1 D), ORAL; (9 GM, 1 D), ORAL
     Route: 048
     Dates: start: 20090801
  8. XYREM             (500 MG/MLS, SOLUTION) (SODIUM OXYBATE) [Suspect]
     Indication: SOMNOLENCE
     Dosage: 4.5 GM (2.25 GM, 2 IN 1 D), ORAL; 6 GM (3 GM, 2 IN 1 D), ORAL; (7 GM, 1 D), ORAL; (9 GM, 1 D), ORAL
     Route: 048
     Dates: start: 20090801
  9. UNSPECIFIED MEDICATION [Suspect]
     Indication: DRUG USE FOR UNKNOWN INDICATION

REACTIONS (9)
  - CANDIDIASIS [None]
  - CONSTIPATION [None]
  - DELUSION [None]
  - DIARRHOEA [None]
  - DIZZINESS [None]
  - DRUG INTERACTION [None]
  - FATIGUE [None]
  - NAUSEA [None]
  - VOMITING [None]
